FAERS Safety Report 8422697-1 (Version None)
Quarter: 2012Q2

REPORT INFORMATION
  Report Type: 
  Country: None (occurrence: None)
  Receive Date: 20120608
  Receipt Date: 20120531
  Transmission Date: 20120825
  Serious: Yes (Death)
  Sender: FDA-Public Use
  Company Number: FR-ROCHE-1074240

PATIENT
  Age: 51 Year
  Sex: Female

DRUGS (5)
  1. CEFOTAXIME [Suspect]
     Indication: URINARY TRACT INFECTION
     Dates: start: 20120201, end: 20120214
  2. DEXAMETHASONE [Suspect]
     Indication: PRODUCT USED FOR UNKNOWN INDICATION
  3. CYTARABINE [Suspect]
     Indication: PRODUCT USED FOR UNKNOWN INDICATION
     Dates: start: 20120214
  4. MABTHERA [Suspect]
     Indication: HISTIOCYTOSIS HAEMATOPHAGIC
     Dates: start: 20120213
  5. ELOXATIN [Suspect]
     Indication: PRODUCT USED FOR UNKNOWN INDICATION
     Dates: start: 20120214

REACTIONS (4)
  - ABDOMINAL PAIN [None]
  - DIARRHOEA [None]
  - DYSPNOEA [None]
  - SHOCK [None]
